FAERS Safety Report 4274327-0 (Version None)
Quarter: 2004Q1

REPORT INFORMATION
  Report Type: 
  Country: None (occurrence: None)
  Receive Date: 20040115
  Receipt Date: 20040112
  Transmission Date: 20041129
  Serious: Yes (Hospitalization)
  Sender: FDA-Public Use
  Company Number: GB-JNJFOC-20040101658

PATIENT
  Sex: Male
  Weight: 105 kg

DRUGS (4)
  1. LEUSTAT (CLADRIBINE) UNSPECIFIED [Suspect]
     Indication: HAIRY CELL LEUKAEMIA
     Dosage: 10 MG
     Dates: start: 20031125, end: 20031129
  2. ALLOPURINOL [Concomitant]
  3. PENTAMIDINE ISETHIONATE [Concomitant]
  4. GRANISETRON [Concomitant]

REACTIONS (7)
  - C-REACTIVE PROTEIN INCREASED [None]
  - DERMATITIS EXFOLIATIVE [None]
  - DRY SKIN [None]
  - EYE SWELLING [None]
  - HEADACHE [None]
  - PYREXIA [None]
  - RASH [None]
